FAERS Safety Report 16821225 (Version 1)
Quarter: 2019Q3

REPORT INFORMATION
  Report Type: Spontaneous
  Country: US (occurrence: US)
  Receive Date: 20190918
  Receipt Date: 20190918
  Transmission Date: 20191005
  Serious: Yes (Hospitalization, Other)
  Sender: FDA-Public Use
  Company Number: US-TEVA-2019-US-1108030

PATIENT
  Sex: Male

DRUGS (1)
  1. BUPRENORPHINE ACTAVIS [Suspect]
     Active Substance: BUPRENORPHINE
     Indication: PAIN
     Dosage: DOSE STRENGTH:  8
     Route: 060
     Dates: start: 2016

REACTIONS (3)
  - Throat cancer [Unknown]
  - Wrong technique in product usage process [Unknown]
  - Colitis [Unknown]

NARRATIVE: CASE EVENT DATE: 201903
